FAERS Safety Report 8005816-0 (Version None)
Quarter: 2011Q4

REPORT INFORMATION
  Report Type: 
  Country: None (occurrence: None)
  Receive Date: 20111223
  Receipt Date: 20111216
  Transmission Date: 20120403
  Serious: Yes (Other)
  Sender: FDA-Public Use
  Company Number: FR-PFIZER INC-2011306042

PATIENT
  Age: 54 Year
  Sex: Female

DRUGS (1)
  1. SUTENT [Suspect]
     Dosage: 37.5 UNK, UNK

REACTIONS (3)
  - LUNG DISORDER [None]
  - FATIGUE [None]
  - ASPERGILLOSIS [None]
